FAERS Safety Report 19490373 (Version 4)
Quarter: 2021Q4

REPORT INFORMATION
  Report Type: Spontaneous
  Country: US (occurrence: US)
  Receive Date: 20210705
  Receipt Date: 20211008
  Transmission Date: 20220303
  Serious: No
  Sender: FDA-Public Use
  Company Number: US-JNJFOC-20210658186

PATIENT
  Age: 28 Year
  Sex: Male

DRUGS (3)
  1. RISPERDAL [Suspect]
     Active Substance: RISPERIDONE
     Indication: Anxiety
     Dosage: 0.5 MG TWICE A DAY, 1 MG DAILY AND 2 MG DAILY AT BED TIME
     Route: 048
     Dates: start: 201212, end: 2013
  2. RISPERDAL [Suspect]
     Active Substance: RISPERIDONE
     Indication: Depression
     Route: 048
     Dates: end: 2019
  3. RISPERDAL [Suspect]
     Active Substance: RISPERIDONE
     Indication: Psychotic disorder

REACTIONS (10)
  - Insulin resistance [Unknown]
  - Emotional disorder [Unknown]
  - Sleep apnoea syndrome [Unknown]
  - Endocrine disorder [Unknown]
  - Dyslipidaemia [Unknown]
  - Hyperglycaemia [Unknown]
  - Hypertension [Unknown]
  - Gynaecomastia [Unknown]
  - Weight increased [Unknown]
  - Drug ineffective [Unknown]

NARRATIVE: CASE EVENT DATE: 20191001
